FAERS Safety Report 17975448 (Version 2)
Quarter: 2020Q3

REPORT INFORMATION
  Report Type: Spontaneous
  Country: FR (occurrence: FR)
  Receive Date: 20200702
  Receipt Date: 20200709
  Transmission Date: 20201103
  Serious: Yes (Hospitalization, Other)
  Sender: FDA-Public Use
  Company Number: FR-MYLANLABS-2020M1060031

PATIENT
  Age: 77 Year
  Sex: Male

DRUGS (6)
  1. ELIQUIS [Suspect]
     Active Substance: APIXABAN
     Dosage: 5 MILLIGRAM, BID
     Route: 048
  2. FUROSEMIDE. [Suspect]
     Active Substance: FUROSEMIDE
     Dosage: 20 MILLIGRAM
     Route: 048
  3. FUROSEMIDE. [Suspect]
     Active Substance: FUROSEMIDE
     Indication: PRODUCT USED FOR UNKNOWN INDICATION
     Dosage: 20 MILLIGRAM, QD (IN THE MORNING)
     Route: 048
  4. ELIQUIS [Suspect]
     Active Substance: APIXABAN
     Indication: PRODUCT USED FOR UNKNOWN INDICATION
     Dosage: 5 MILLIGRAM, Q2D (ONE TABLET IN THE MORNING AND IN THE EVENING)/10 MG QD
     Route: 048
  5. SOTALOL. [Suspect]
     Active Substance: SOTALOL
     Indication: PRODUCT USED FOR UNKNOWN INDICATION
     Dosage: 80 MILLIGRAM, Q2D (ONE TABLET IN THE MORNING AND IN THE EVENING)/160 MG, QD
     Route: 048
     Dates: start: 202001
  6. SOTALOL. [Suspect]
     Active Substance: SOTALOL
     Dosage: 80 MILLIGRAM, BID
     Route: 048
     Dates: start: 202001

REACTIONS (7)
  - Chest discomfort [Unknown]
  - Gait disturbance [Unknown]
  - Dyspnoea [Unknown]
  - Dizziness postural [Unknown]
  - Inflammation [Unknown]
  - Hypokinesia [Unknown]
  - Pain in extremity [Unknown]

NARRATIVE: CASE EVENT DATE: 2020
